FAERS Safety Report 19491018 (Version 1)
Quarter: 2021Q3

REPORT INFORMATION
  Report Type: Spontaneous
  Country: US (occurrence: US)
  Receive Date: 20210705
  Receipt Date: 20210705
  Transmission Date: 20211014
  Serious: No
  Sender: FDA-Public Use
  Company Number: US-SA-2021SA213166

PATIENT
  Age: 62 Year
  Sex: Female

DRUGS (2)
  1. LANTUS SOLOSTAR [Suspect]
     Active Substance: INSULIN GLARGINE
     Indication: TYPE 2 DIABETES MELLITUS
     Dosage: 16 IU, QD
     Route: 065
     Dates: start: 202102
  2. HUMALOG [Concomitant]
     Active Substance: INSULIN LISPRO
     Dosage: DOSAGE VARIES, SLIDING SCALE
     Route: 065

REACTIONS (1)
  - Product storage error [Unknown]
